FAERS Safety Report 7138233-6 (Version None)
Quarter: 2010Q4

REPORT INFORMATION
  Report Type: 
  Country: None (occurrence: None)
  Receive Date: 20101118
  Receipt Date: 20101109
  Transmission Date: 20110411
  Serious: Yes (Other)
  Sender: FDA-Public Use
  Company Number: CIP10002723

PATIENT
  Age: 75 Year
  Sex: Female

DRUGS (6)
  1. ACTONEL [Suspect]
     Indication: OSTEOPOROSIS
     Dosage: 35 MG ONCE WEEKLY, ORAL
     Route: 048
     Dates: start: 20051010, end: 20090401
  2. AMBIEN [Concomitant]
  3. LOVASTATIN [Concomitant]
  4. NIFEDICAL SL (NIFEDIPINE) [Concomitant]
  5. ATENOLOL [Concomitant]
  6. GABAPENTIN [Concomitant]

REACTIONS (14)
  - BONE DENSITY DECREASED [None]
  - BONE GRAFT [None]
  - DEFORMITY [None]
  - DENTAL DISCOMFORT [None]
  - FEAR [None]
  - GINGIVITIS [None]
  - HYPOPHAGIA [None]
  - JAW DISORDER [None]
  - LOOSE TOOTH [None]
  - PAIN IN JAW [None]
  - PERIODONTITIS [None]
  - SENSITIVITY OF TEETH [None]
  - SPEECH DISORDER [None]
  - TOOTH INJURY [None]
